FAERS Safety Report 19722288 (Version 2)
Quarter: 2022Q2

REPORT INFORMATION
  Report Type: Spontaneous
  Country: US (occurrence: US)
  Receive Date: 20210819
  Receipt Date: 20220414
  Transmission Date: 20220721
  Serious: No
  Sender: FDA-Public Use
  Company Number: US-PFIZER INC-202101006903

PATIENT
  Age: 91 Year
  Sex: Female

DRUGS (3)
  1. IBRANCE [Suspect]
     Active Substance: PALBOCICLIB
     Indication: Chemotherapy
     Dosage: 125 MG, CYCLIC (QD X 21 DAYS)
  2. IBRANCE [Suspect]
     Active Substance: PALBOCICLIB
     Dosage: 125 MG
     Dates: start: 20210819
  3. PREGABALIN [Concomitant]
     Active Substance: PREGABALIN
     Dosage: UNK

REACTIONS (3)
  - Vision blurred [Not Recovered/Not Resolved]
  - Alopecia [Not Recovered/Not Resolved]
  - Product dose omission issue [Unknown]
